FAERS Safety Report 25013010 (Version 2)
Quarter: 2025Q2

REPORT INFORMATION
  Report Type: Spontaneous
  Country: JP (occurrence: JP)
  Receive Date: 20250226
  Receipt Date: 20250424
  Transmission Date: 20250716
  Serious: Yes (Hospitalization)
  Sender: AMGEN
  Company Number: JP-PFIZER INC-PV202500019701

PATIENT
  Age: 84 Year
  Sex: Female

DRUGS (3)
  1. ENBREL [Suspect]
     Active Substance: ETANERCEPT
     Indication: Rheumatoid arthritis
     Dosage: 50 MG, WEEKLY
     Route: 058
     Dates: start: 2020
  2. IGURATIMOD [Concomitant]
     Active Substance: IGURATIMOD
     Route: 048
  3. METHOTREXATE [Concomitant]
     Active Substance: METHOTREXATE
     Route: 048

REACTIONS (2)
  - Myocardial infarction [Unknown]
  - Cardiac failure [Recovered/Resolved]

NARRATIVE: CASE EVENT DATE: 20250101
